FAERS Safety Report 5924845-1 (Version None)
Quarter: 2008Q4

REPORT INFORMATION
  Report Type: 
  Country: None (occurrence: None)
  Receive Date: 20081020
  Receipt Date: 20081020
  Transmission Date: 20090506
  Serious: Yes (Other)
  Sender: FDA-Public Use
  Company Number: None

PATIENT
  Sex: Male
  Weight: 71.6683 kg

DRUGS (1)
  1. PROAIR HFA [Suspect]
     Indication: ASTHMA
     Dosage: TWO PUFFS TWICE DAILY INHAL
     Route: 055
     Dates: start: 20080915, end: 20081015

REACTIONS (5)
  - ASPHYXIA [None]
  - BRONCHOSPASM [None]
  - DRUG INEFFECTIVE [None]
  - LUNG DISORDER [None]
  - THERAPEUTIC RESPONSE UNEXPECTED WITH DRUG SUBSTITUTION [None]
